FAERS Safety Report 10056479 (Version 1)
Quarter: 2014Q2

REPORT INFORMATION
  Report Type: Spontaneous
  Country: US (occurrence: US)
  Receive Date: 20140403
  Receipt Date: 20140403
  Transmission Date: 20141212
  Serious: No
  Sender: FDA-Public Use
  Company Number: US-TARO-2013P1022366

PATIENT
  Age: 51 Year
  Sex: Female

DRUGS (1)
  1. HYDROCORTISONE 1% W/ACETIC ACID 2% OTIC SOLUTION USP [Suspect]
     Route: 031
     Dates: start: 20131227, end: 20131227

REACTIONS (2)
  - Drug administered at inappropriate site [Unknown]
  - Eye irritation [Unknown]
